FAERS Safety Report 8219541-4 (Version None)
Quarter: 2012Q1

REPORT INFORMATION
  Report Type: 
  Country: None (occurrence: None)
  Receive Date: 20120319
  Receipt Date: 20120307
  Transmission Date: 20120608
  Serious: Yes (Other)
  Sender: FDA-Public Use
  Company Number: AU-BRISTOL-MYERS SQUIBB COMPANY-16443319

PATIENT
  Age: 75 Year
  Sex: Female

DRUGS (8)
  1. WARFARIN SODIUM [Suspect]
  2. CENTRUM [Concomitant]
     Indication: NUTRITIONAL SUPPORT
     Dosage: 1DF = 1TAB,REG NO: AUST L 179458
     Route: 048
     Dates: start: 20120101
  3. DIGOXIN [Suspect]
     Indication: ATRIAL FIBRILLATION
  4. MINERAL TAB [Concomitant]
  5. CARVEDILOL [Suspect]
     Indication: ATRIAL FIBRILLATION
  6. TEMAZEPAM [Concomitant]
     Indication: SLEEP DISORDER
  7. CALCIUM CARBONATE [Concomitant]
     Indication: NUTRITIONAL SUPPORT
     Dosage: REG NO:AUST L 167283
     Route: 048
  8. VITAMIN D [Concomitant]
     Indication: NUTRITIONAL SUPPORT
     Dosage: REG NO: AUST L 167283,1 DF = 1 TAB
     Route: 048

REACTIONS (1)
  - RETINAL DETACHMENT [None]
